FAERS Safety Report 6092203-8 (Version None)
Quarter: 2009Q1

REPORT INFORMATION
  Report Type: 
  Country: None (occurrence: None)
  Receive Date: 20090223
  Receipt Date: 20090223
  Transmission Date: 20090719
  Serious: Yes (Disabling)
  Sender: FDA-Public Use
  Company Number: None

PATIENT
  Sex: Female
  Weight: 49.9 kg

DRUGS (1)
  1. TAXOL [Suspect]

REACTIONS (5)
  - BRADYCARDIA [None]
  - CORONARY ARTERY OCCLUSION [None]
  - HYPOTENSION [None]
  - MYOCARDIAL INFARCTION [None]
  - VENTRICULAR FIBRILLATION [None]
